FAERS Safety Report 6426864-8 (Version None)
Quarter: 2009Q4

REPORT INFORMATION
  Report Type: 
  Country: None (occurrence: None)
  Receive Date: 20091104
  Receipt Date: 20091027
  Transmission Date: 20100525
  Serious: Yes (Life-Threatening)
  Sender: FDA-Public Use
  Company Number: JP-BAYER-200912730BYL

PATIENT
  Age: 60 Year
  Sex: Male
  Weight: 57 kg

DRUGS (11)
  1. NEXAVAR [Suspect]
     Indication: HEPATIC NEOPLASM MALIGNANT
     Dosage: TOTAL DAILY DOSE: 800 MG  UNIT DOSE: 200 MG
     Route: 048
     Dates: start: 20090706
  2. NEXAVAR [Suspect]
     Dosage: TOTAL DAILY DOSE: 400 MG  UNIT DOSE: 200 MG
     Route: 048
     Dates: start: 20090728
  3. NEXAVAR [Suspect]
     Dosage: TOTAL DAILY DOSE: 400 MG  UNIT DOSE: 200 MG
     Route: 048
     Dates: start: 20090825
  4. BARACLUDE [Concomitant]
     Route: 048
     Dates: start: 20090702
  5. PARIET [Concomitant]
     Route: 048
     Dates: start: 20090625
  6. NORVASC [Concomitant]
     Dosage: BEFORE NEXAVAR ADMINISTRATION
     Route: 048
  7. LIVACT [Concomitant]
     Route: 048
     Dates: start: 20090707
  8. SAHNE [Concomitant]
     Indication: PROPHYLAXIS
     Route: 061
     Dates: start: 20090702
  9. HEPARIN SODIUM [Concomitant]
     Indication: THROMBOSIS PROPHYLAXIS
     Route: 042
     Dates: start: 20090709, end: 20090709
  10. HEPARIN SODIUM [Concomitant]
     Route: 042
     Dates: start: 20090804, end: 20090804
  11. HEPARIN SODIUM [Concomitant]
     Route: 042
     Dates: start: 20090720, end: 20090720

REACTIONS (6)
  - ERYTHEMA MULTIFORME [None]
  - HEPATIC FUNCTION ABNORMAL [None]
  - HYPOPHOSPHATAEMIA [None]
  - PALMAR-PLANTAR ERYTHRODYSAESTHESIA SYNDROME [None]
  - PYREXIA [None]
  - STOMATITIS [None]
